FAERS Safety Report 6527700-1 (Version None)
Quarter: 2010Q1

REPORT INFORMATION
  Report Type: 
  Country: None (occurrence: None)
  Receive Date: 20100106
  Receipt Date: 20091223
  Transmission Date: 20100710
  Serious: Yes (Other)
  Sender: FDA-Public Use
  Company Number: AT-RANBAXY-2009RR-29048

PATIENT
  Age: 27 Year
  Sex: Male

DRUGS (4)
  1. CIPROFLOXACIN [Suspect]
     Indication: INFECTION
     Dosage: 500 MG, TID
     Route: 048
     Dates: start: 20090912, end: 20090917
  2. CEFACLOR [Suspect]
  3. CEPHALOBENE 1000MG [Suspect]
     Indication: INFECTION
     Dosage: 1 G, UNK
     Route: 048
     Dates: start: 20090917, end: 20090917
  4. METHOTREXATE [Suspect]
     Indication: ARTHRITIS
     Dosage: 2.5 MG, 1/WEEK
     Route: 048
     Dates: start: 20090905, end: 20090917

REACTIONS (2)
  - COMPLEX PARTIAL SEIZURES [None]
  - PSYCHOMOTOR SEIZURES [None]
